FAERS Safety Report 18205649 (Version 1)
Quarter: 2020Q3

REPORT INFORMATION
  Report Type: Spontaneous
  Country: DE (occurrence: DE)
  Receive Date: 20200828
  Receipt Date: 20200828
  Transmission Date: 20201103
  Serious: Yes (Hospitalization)
  Sender: FDA-Public Use
  Company Number: DE-TEVA-2020-DE-1819675

PATIENT
  Age: 75 Year
  Sex: Female
  Weight: 75 kg

DRUGS (18)
  1. CLEMASTIN [Suspect]
     Active Substance: CLEMASTINE
     Dosage: 1 MILLIGRAM DAILY;  0?0?0?1
     Route: 048
  2. ROPINIROL [Concomitant]
     Active Substance: ROPINIROLE
     Dosage: .5 MILLIGRAM DAILY; UNIT DOSE : 0.25 MG, 1?0?1?0
     Route: 048
  3. KALIUMCITRAT [Concomitant]
     Active Substance: POTASSIUM CITRATE
     Dosage: 6471.9 MILLIGRAM DAILY; UNIT DOSE : 2157.3 MG, 1?1?1?0, SACHET
     Route: 048
  4. PANTOPRAZOL [Concomitant]
     Active Substance: PANTOPRAZOLE SODIUM
     Dosage: 20 MILLIGRAM DAILY; 1?0?0?0
     Route: 048
  5. DULOXETIN [Suspect]
     Active Substance: DULOXETINE
     Dosage: 30 MILLIGRAM DAILY; 1?0?0?0
     Route: 048
  6. APIXABAN [Concomitant]
     Active Substance: APIXABAN
     Dosage: 5 MILLIGRAM DAILY; UNIT DOSE : 2.5 MG, 1?0?1?0
     Route: 048
  7. DONEPEZIL. [Concomitant]
     Active Substance: DONEPEZIL
     Dosage: 10 MILLIGRAM DAILY; 0?0?1?0
     Route: 048
  8. FLUTICASONFUROAT/VILANTEROL [Concomitant]
     Dosage: 1 DOSAGE FORMS DAILY; 100 | 25 MICROGRAM, 1?0?0?0, METERED DOSE AEROSOL
     Route: 055
  9. FOLSAURE [Concomitant]
     Active Substance: FOLIC ACID
     Dosage: 5 MILLIGRAM DAILY; 1?0?0?0
     Route: 048
  10. TORASEMID [Suspect]
     Active Substance: TORSEMIDE
     Dosage: 50 MG, 1?1?0?0, UNIT DOSE : 100 MILLIGRAM
     Route: 048
  11. BENSERAZID/LEVODOPA [Concomitant]
     Active Substance: BENSERAZIDE\LEVODOPA
     Dosage: 1 DOSAGE FORMS DAILY; 25 | 100 MG, 0?0?0?1
     Route: 048
  12. ALFACALCIDOL [Concomitant]
     Active Substance: ALFACALCIDOL
     Dosage: .25 MICROGRAM DAILY; 0?0?1?0
     Route: 048
  13. LEVOTHYROXIN?NATRIUM [Concomitant]
     Active Substance: LEVOTHYROXINE SODIUM
     Dosage: .1 MILLIGRAM DAILY; 1?0?0?0
     Route: 048
  14. HYDROMORPHON [Suspect]
     Active Substance: HYDROMORPHONE
     Dosage: 2.6 MILLIGRAM DAILY; AS NEEDED
     Route: 048
  15. HYDROMORPHON [Suspect]
     Active Substance: HYDROMORPHONE
     Dosage: 24 MILLIGRAM DAILY; UNIT DOSE : 8 MG, 1?1?1?0,SUSTAINED RELEASE
     Route: 048
  16. SALBUTAMOL [Concomitant]
     Active Substance: ALBUTEROL
     Dosage: .1 MILLIGRAM DAILY; REQUIREMENT, METERED DOSE INHALER
     Route: 055
  17. ROPINIROL [Concomitant]
     Active Substance: ROPINIROLE
     Dosage: NEEDS; UNIT DOSE : 0.25 MG
     Route: 048
  18. MAGNESIUMOXID [Concomitant]
     Dosage: 250 MG, 2?0?1?0, UNIT DOSE : 3 DOSAGE FORMS
     Route: 048

REACTIONS (5)
  - General physical health deterioration [Unknown]
  - Dizziness [Unknown]
  - Decreased appetite [Unknown]
  - Fall [Unknown]
  - Product monitoring error [Unknown]
